FAERS Safety Report 14919929 (Version 2)
Quarter: 2018Q3

REPORT INFORMATION
  Report Type: Spontaneous
  Country: HU (occurrence: HU)
  Receive Date: 20180521
  Receipt Date: 20180705
  Transmission Date: 20181010
  Serious: Yes (Other)
  Sender: FDA-Public Use
  Company Number: HU-JNJFOC-20171230324

PATIENT
  Age: 98 Year
  Sex: Female

DRUGS (2)
  1. FENTANYL. [Suspect]
     Active Substance: FENTANYL
     Indication: ARTHRALGIA
     Route: 062
     Dates: start: 2016
  2. FENTANYL. [Suspect]
     Active Substance: FENTANYL
     Indication: ARTHRALGIA
     Route: 062
     Dates: start: 20171218

REACTIONS (9)
  - Insomnia [Recovering/Resolving]
  - Muscle spasms [Unknown]
  - Paralysis [Recovering/Resolving]
  - Pain [Unknown]
  - Restlessness [Unknown]
  - Confusional state [Not Recovered/Not Resolved]
  - Fear [Unknown]
  - Withdrawal syndrome [Not Recovered/Not Resolved]
  - Hallucination [Not Recovered/Not Resolved]
